FAERS Safety Report 7820683-3 (Version None)
Quarter: 2011Q4

REPORT INFORMATION
  Report Type: 
  Country: None (occurrence: None)
  Receive Date: 20111013
  Receipt Date: 20111005
  Transmission Date: 20120403
  Serious: Yes (Hospitalization, Other)
  Sender: FDA-Public Use
  Company Number: ABR_00255_2011

PATIENT
  Age: 65 Year
  Sex: Male

DRUGS (5)
  1. ERYTHROMYCIN [Suspect]
     Indication: PRODUCT USED FOR UNKNOWN INDICATION
     Dosage: (1.5 G (1.5 GM, 1 IN 1 D)
  2. PREDNISOLONE [Suspect]
     Indication: PRODUCT USED FOR UNKNOWN INDICATION
     Dosage: (60 GM, 1 IN 1 D))
  3. CEFTRIAXONE [Suspect]
     Indication: PRODUCT USED FOR UNKNOWN INDICATION
     Dosage: (2 GM, 1 IN 1 D) INTRAVENOUS (NOT OTHERWISE SPECIFIED)
     Route: 042
  4. DORIPENEM [Suspect]
     Indication: PRODUCT USED FOR UNKNOWN INDICATION
     Dosage: ((1.5 GM, 1 IN 1 D))
  5. METHYLPREDNISOLONE [Suspect]
     Indication: PRODUCT USED FOR UNKNOWN INDICATION
     Dosage: ((1 GM, 1 IN 1 D))

REACTIONS (9)
  - DRUG INEFFECTIVE [None]
  - CANDIDIASIS [None]
  - DIFFUSE ALVEOLAR DAMAGE [None]
  - PNEUMONIA [None]
  - HAEMOPTYSIS [None]
  - SEPSIS [None]
  - GENERAL PHYSICAL HEALTH DETERIORATION [None]
  - RESPIRATORY FAILURE [None]
  - ANAEMIA [None]
